FAERS Safety Report 20074851 (Version 1)
Quarter: 2021Q4

REPORT INFORMATION
  Report Type: Spontaneous
  Country: US (occurrence: US)
  Receive Date: 20211116
  Receipt Date: 20211116
  Transmission Date: 20220303
  Serious: No
  Sender: FDA-Public Use
  Company Number: US-SA-SAC20211110000117

PATIENT
  Age: 70 Year
  Sex: Female

DRUGS (8)
  1. DUPIXENT [Suspect]
     Active Substance: DUPILUMAB
     Indication: Psoriatic arthropathy
     Dosage: 300MG/2ML, 300 MG, QOW
     Route: 058
     Dates: start: 20191202
  2. DILTIAZEM [Concomitant]
     Active Substance: DILTIAZEM
  3. FLUTICASONE [Concomitant]
     Active Substance: FLUTICASONE
  4. LORAZEPAM [Concomitant]
     Active Substance: LORAZEPAM
  5. PAROXETINE [Concomitant]
     Active Substance: PAROXETINE
  6. PRAVASTATIN [Concomitant]
     Active Substance: PRAVASTATIN
  7. LEVOTHYROXINE [Concomitant]
     Active Substance: LEVOTHYROXINE
  8. THEO-24 [Concomitant]
     Active Substance: THEOPHYLLINE ANHYDROUS

REACTIONS (4)
  - Pain [Unknown]
  - Psoriasis [Unknown]
  - Rash [Unknown]
  - Product use in unapproved indication [Unknown]

NARRATIVE: CASE EVENT DATE: 20191202
